FAERS Safety Report 24109676 (Version 1)
Quarter: 2024Q3

REPORT INFORMATION
  Report Type: Spontaneous
  Country: GB (occurrence: GB)
  Receive Date: 20240718
  Receipt Date: 20240718
  Transmission Date: 20241016
  Serious: Yes (Hospitalization, Other)
  Sender: CELLTRION
  Company Number: GB-CELLTRION INC.-2024GB015608

PATIENT

DRUGS (2)
  1. YUFLYMA [Suspect]
     Active Substance: ADALIMUMAB-AATY
     Indication: Rheumatoid arthritis
     Dosage: 40MG PEN PK2
     Route: 058
     Dates: start: 202405, end: 202407
  2. YUFLYMA [Suspect]
     Active Substance: ADALIMUMAB-AATY
     Dosage: 40MG PEN PK2
     Route: 058
     Dates: start: 20240704

REACTIONS (8)
  - Mobility decreased [Unknown]
  - Synovitis [Unknown]
  - Chills [Recovering/Resolving]
  - Postoperative wound infection [Unknown]
  - Pain in extremity [Unknown]
  - Pyrexia [Recovering/Resolving]
  - Peripheral coldness [Recovering/Resolving]
  - Hot flush [Recovering/Resolving]

NARRATIVE: CASE EVENT DATE: 20240704
